FAERS Safety Report 11878011 (Version 1)
Quarter: 2015Q4

REPORT INFORMATION
  Report Type: Report from Study
  Country: US (occurrence: US)
  Receive Date: 20151230
  Receipt Date: 20151230
  Transmission Date: 20160305
  Serious: No
  Sender: FDA-Public Use
  Company Number: US-AMGEN-USASL2015135406

PATIENT
  Age: 24 Year
  Sex: Female

DRUGS (1)
  1. ENBREL [Suspect]
     Active Substance: ETANERCEPT
     Indication: ANKYLOSING SPONDYLITIS
     Dosage: QWK
     Route: 065
     Dates: start: 20151120

REACTIONS (5)
  - Injection site bruising [Recovered/Resolved]
  - Pain [Unknown]
  - Joint swelling [Recovering/Resolving]
  - Musculoskeletal stiffness [Unknown]
  - Injection site pain [Unknown]

NARRATIVE: CASE EVENT DATE: 20151211
